FAERS Safety Report 14584813 (Version 1)
Quarter: 2018Q1

REPORT INFORMATION
  Report Type: Spontaneous
  Country: US (occurrence: US)
  Receive Date: 20180301
  Receipt Date: 20180301
  Transmission Date: 20180509
  Serious: No
  Sender: FDA-Public Use
  Company Number: US-009507513-1504USA012004

PATIENT
  Age: 33 Year
  Sex: Female

DRUGS (5)
  1. CEFAZOLIN [Concomitant]
     Active Substance: CEFAZOLIN
     Dosage: 2 GM, Q8H
     Route: 042
  2. PIPERACILLIN [Concomitant]
     Active Substance: PIPERACILLIN
     Dosage: 3.325 GM, Q8H
     Route: 042
  3. DAPTOMYCIN. [Suspect]
     Active Substance: DAPTOMYCIN
     Dosage: 6 MG/KG, Q24H
     Route: 042
  4. AMINO ACIDS (UNSPECIFIED) (+) CARBOHYDRATES (UNSPECIFIED) (+) ELECTROL [Concomitant]
     Dosage: UNK UNK, UNK
  5. VANCOMYCIN [Concomitant]
     Active Substance: VANCOMYCIN
     Dosage: 1 GM, Q12H
     Route: 042

REACTIONS (1)
  - No adverse event [Unknown]
